FAERS Safety Report 19178096 (Version 1)
Quarter: 2021Q2

REPORT INFORMATION
  Report Type: Spontaneous
  Country: US (occurrence: US)
  Receive Date: 20210426
  Receipt Date: 20210426
  Transmission Date: 20210717
  Serious: No
  Sender: FDA-Public Use
  Company Number: US-BIOGEN-2021BI01003397

PATIENT
  Sex: Female

DRUGS (2)
  1. TECFIDERA [Suspect]
     Active Substance: DIMETHYL FUMARATE
     Dosage: MAINTENANCE DOSE
     Route: 048
     Dates: start: 20170110
  2. TECFIDERA [Suspect]
     Active Substance: DIMETHYL FUMARATE
     Indication: MULTIPLE SCLEROSIS
     Dosage: STARTING DOSE
     Route: 048
     Dates: start: 20170103, end: 20170109

REACTIONS (6)
  - Dizziness [Recovered/Resolved]
  - Gastrointestinal disorder [Recovered/Resolved]
  - Product dose omission issue [Unknown]
  - Feeling abnormal [Recovered/Resolved]
  - Herpes zoster [Recovered/Resolved]
  - Asthenia [Recovered/Resolved]
